FAERS Safety Report 7551912-1 (Version None)
Quarter: 2011Q2

REPORT INFORMATION
  Report Type: 
  Country: None (occurrence: None)
  Receive Date: 20110616
  Receipt Date: 20110606
  Transmission Date: 20111010
  Serious: Yes (Other)
  Sender: FDA-Public Use
  Company Number: US-BAYER-201026821NA

PATIENT
  Age: 27 Year
  Sex: Female
  Weight: 59 kg

DRUGS (2)
  1. YASMIN [Suspect]
     Dosage: UNK
     Dates: start: 20040811, end: 20041101
  2. YASMIN [Suspect]
     Indication: PRODUCT USED FOR UNKNOWN INDICATION
     Dosage: UNK
     Route: 048
     Dates: start: 20030101, end: 20031015

REACTIONS (2)
  - GALLBLADDER DISORDER [None]
  - PAIN [None]
